FAERS Safety Report 4627343-0 (Version None)
Quarter: 2005Q2

REPORT INFORMATION
  Report Type: 
  Country: None (occurrence: None)
  Receive Date: 20050405
  Receipt Date: 20050304
  Transmission Date: 20051028
  Serious: Yes (Death)
  Sender: FDA-Public Use
  Company Number: 2005S1000950

PATIENT
  Age: 18 Year
  Sex: Male

DRUGS (6)
  1. CLOZAPINE [Suspect]
     Indication: SCHIZOPHRENIA
     Dosage: 150 MG , QAM; PO
     Route: 048
     Dates: start: 20041201
  2. CLONAZEPAM [Concomitant]
  3. CLOMIPRAMINE [Concomitant]
  4. HYDROCHLORIDE [Concomitant]
  5. TRAZODONE HCL [Concomitant]
  6. MINOCYCLINE HCL [Concomitant]

REACTIONS (3)
  - ACCIDENTAL OVERDOSE [None]
  - DRUG EFFECT DECREASED [None]
  - MENTAL STATUS CHANGES [None]
